FAERS Safety Report 16789119 (Version 4)
Quarter: 2019Q4

REPORT INFORMATION
  Report Type: Spontaneous
  Country: ES (occurrence: ES)
  Receive Date: 20190910
  Receipt Date: 20191001
  Transmission Date: 20200122
  Serious: Yes (Hospitalization, Other)
  Sender: FDA-Public Use
  Company Number: ES-AUROBINDO-AUR-APL-2019-058587

PATIENT
  Age: 26 Year
  Sex: Male

DRUGS (17)
  1. DAPTOMYCIN. [Suspect]
     Active Substance: DAPTOMYCIN
     Indication: ANTIBIOTIC THERAPY
     Dosage: 560 MILLIGRAM, ONCE A DAY
     Route: 042
  2. MEROPENEM. [Suspect]
     Active Substance: MEROPENEM
     Indication: ANTIBIOTIC THERAPY
  3. CLINDAMYCIN. [Suspect]
     Active Substance: CLINDAMYCIN
     Indication: ANTIBIOTIC THERAPY
     Dosage: 60 MILLIGRAM, TWO TIMES A DAY
     Route: 042
  4. CLONAZEPAM. [Concomitant]
     Active Substance: CLONAZEPAM
     Dosage: 6-8 MILLIGRAM, DAILY
     Route: 065
  5. PAROXETINE. [Concomitant]
     Active Substance: PAROXETINE
     Indication: WITHDRAWAL SYNDROME
     Dosage: 20 MILLIGRAM
     Route: 065
  6. PAROXETINE. [Concomitant]
     Active Substance: PAROXETINE
     Dosage: 40 MILLIGRAM, ONCE A DAY
     Route: 065
  7. PROPOFOL. [Concomitant]
     Active Substance: PROPOFOL
     Indication: SEDATION
     Dosage: UNK
     Route: 065
  8. LORMETAZEPAM [Concomitant]
     Active Substance: LORMETAZEPAM
     Indication: WITHDRAWAL SYNDROME
     Dosage: 2 MILLIGRAM
     Route: 065
  9. GABAPENTIN. [Concomitant]
     Active Substance: GABAPENTIN
     Dosage: 1800 MILLIGRAM, ONCE A DAY
     Route: 065
  10. OLANZAPINE. [Concomitant]
     Active Substance: OLANZAPINE
     Dosage: 15-20 MILLIGRAM, DAILY
     Route: 065
  11. MEROPENEM. [Suspect]
     Active Substance: MEROPENEM
     Indication: SOFT TISSUE INFECTION
     Dosage: 1 GRAM, 3 TIMES A DAY
     Route: 042
  12. CLONAZEPAM. [Concomitant]
     Active Substance: CLONAZEPAM
     Indication: WITHDRAWAL SYNDROME
     Dosage: 2 MILLIGRAM, FOUR TIMES/DAY
     Route: 065
  13. QUETIAPINE. [Concomitant]
     Active Substance: QUETIAPINE
     Indication: WITHDRAWAL SYNDROME
     Dosage: 150 MILLIGRAM, ONCE A DAY
     Route: 065
  14. DEXMEDETOMIDINE. [Concomitant]
     Active Substance: DEXMEDETOMIDINE
     Indication: SEDATION
     Dosage: UNK
     Route: 065
  15. GABAPENTIN. [Concomitant]
     Active Substance: GABAPENTIN
     Indication: WITHDRAWAL SYNDROME
     Dosage: 800 MILLIGRAM, 3 TIMES A DAY
     Route: 065
  16. OLANZAPINE. [Concomitant]
     Active Substance: OLANZAPINE
     Indication: WITHDRAWAL SYNDROME
     Dosage: 5 MILLIGRAM, 3 TIMES A DAY
     Route: 065
  17. MIDAZOLAM [Concomitant]
     Active Substance: MIDAZOLAM HYDROCHLORIDE
     Indication: SEDATION
     Dosage: UNK
     Route: 065

REACTIONS (4)
  - Aspartate aminotransferase abnormal [Recovering/Resolving]
  - Hepatitis toxic [Recovering/Resolving]
  - Alanine aminotransferase abnormal [Recovering/Resolving]
  - Drug-induced liver injury [Unknown]
